FAERS Safety Report 6447212-3 (Version None)
Quarter: 2009Q4

REPORT INFORMATION
  Report Type: 
  Country: None (occurrence: None)
  Receive Date: 20091119
  Receipt Date: 20091110
  Transmission Date: 20100525
  Serious: Yes (Hospitalization)
  Sender: FDA-Public Use
  Company Number: FR-ASTRAZENECA-2009SE25656

PATIENT
  Age: 65 Year
  Sex: Female

DRUGS (6)
  1. MOPRAL [Suspect]
     Indication: PROPHYLAXIS AGAINST GASTROINTESTINAL ULCER
     Route: 048
     Dates: start: 20090910, end: 20091001
  2. FELDENE [Suspect]
     Indication: SCIATICA
     Route: 048
     Dates: start: 20090910, end: 20091001
  3. MYOLASTAN [Suspect]
     Indication: SCIATICA
     Route: 048
     Dates: start: 20090910, end: 20091001
  4. DETENSIEL [Suspect]
     Indication: HYPERTENSION
     Route: 048
  5. ZANIDIP [Suspect]
     Indication: HYPERTENSION
     Route: 048
  6. DAFALGAN [Suspect]
     Indication: SCIATICA
     Route: 048

REACTIONS (5)
  - AGRANULOCYTOSIS [None]
  - LYMPHADENITIS [None]
  - NEUTROPENIA [None]
  - ORAL FUNGAL INFECTION [None]
  - PYREXIA [None]
